FAERS Safety Report 5662411-6 (Version None)
Quarter: 2008Q1

REPORT INFORMATION
  Report Type: 
  Country: None (occurrence: None)
  Receive Date: 20080313
  Receipt Date: 20080310
  Transmission Date: 20080703
  Serious: Yes (Death, Other)
  Sender: FDA-Public Use
  Company Number: PH-ASTRAZENECA-2008AP01808

PATIENT
  Age: 4 Month

DRUGS (2)
  1. MERONEM [Suspect]
     Route: 042
  2. STEROIDS [Concomitant]

REACTIONS (2)
  - DEATH [None]
  - THROMBOCYTOPENIA [None]
